FAERS Safety Report 9342477 (Version 1)
Quarter: 2013Q2

REPORT INFORMATION
  Report Type: Spontaneous
  Country: JP (occurrence: JP)
  Receive Date: 20130611
  Receipt Date: 20130611
  Transmission Date: 20140414
  Serious: Yes (Other)
  Sender: FDA-Public Use
  Company Number: JP-TEVA-411036ISR

PATIENT
  Age: 66 Year
  Sex: Female

DRUGS (3)
  1. CISPLATIN [Suspect]
     Indication: GASTRIC CANCER STAGE IV
     Dosage: 60 MG/M2 DAILY; D8 OF CYCLE. ADR ONSET WAS APPARENT AFTER THE FIRST CYCLE
     Route: 042
  2. GIMERACIL, OTERACIL, TEGAFUR [Concomitant]
     Indication: GASTRIC CANCER STAGE IV
     Dosage: 100 MILLIGRAM DAILY; D1-21 OF CYCLE
     Route: 048
  3. DEXAMETHASONE [Concomitant]
     Dosage: 8MG ON D8 AND 5MG ON D9, D10 OF CYCLE

REACTIONS (1)
  - Aortic thrombosis [Recovering/Resolving]
